FAERS Safety Report 8460418 (Version 4)
Quarter: 2013Q4

REPORT INFORMATION
  Report Type: Spontaneous
  Country: US (occurrence: US)
  Receive Date: 20120315
  Receipt Date: 20131004
  Transmission Date: 20140711
  Serious: Yes (Other)
  Sender: FDA-Public Use
  Company Number: US-PFIZER INC-2012063500

PATIENT
  Age: 27 Year
  Sex: Female

DRUGS (6)
  1. ETHINYL ESTRADIOL/NORGESTREL [Suspect]
     Indication: ORAL CONTRACEPTION
     Dosage: 0.3/0.03MG DAILY
     Route: 048
  2. LO/OVRAL-28 [Suspect]
     Indication: CONTRACEPTION
     Dosage: UNK
     Route: 048
  3. LO/OVRAL-28 [Suspect]
     Dosage: 0.3MG /30 MCG DAILY
     Route: 048
     Dates: start: 20050103
  4. LO/OVRAL-28 [Suspect]
     Dosage: 0.3MG /30MCG
     Route: 048
     Dates: start: 20091231, end: 201202
  5. LOW-OGESTREL [Concomitant]
     Dosage: 0.3MG/ 30MCG, ONCE DAILY
     Route: 048
     Dates: start: 20100517, end: 20120210
  6. MICROGESTIN [Concomitant]
     Dosage: 1.5MG/30MCG, ONCE DAILY
     Route: 048
     Dates: start: 20120210, end: 20120316

REACTIONS (3)
  - Product quality issue [Unknown]
  - Drug ineffective [Unknown]
  - Unintended pregnancy [Unknown]
